FAERS Safety Report 7741659-0 (Version None)
Quarter: 2011Q3

REPORT INFORMATION
  Report Type: 
  Country: None (occurrence: None)
  Receive Date: 20110912
  Receipt Date: 20110906
  Transmission Date: 20111222
  Serious: Yes (Other)
  Sender: FDA-Public Use
  Company Number: US-AMGEN-USASP2011045373

PATIENT
  Age: 83 Year
  Sex: Female

DRUGS (2)
  1. TREXALL [Concomitant]
     Dosage: 6 MG, UNK
     Dates: start: 20090901
  2. ENBREL [Suspect]
     Indication: RHEUMATOID ARTHRITIS
     Dosage: 50 MG, QWK
     Dates: start: 20110802

REACTIONS (5)
  - TENDON DISORDER [None]
  - VARICOSE VEIN [None]
  - ROTATOR CUFF SYNDROME [None]
  - JOINT SWELLING [None]
  - OSTEOPOROSIS [None]
